FAERS Safety Report 11578354 (Version 1)
Quarter: 2015Q3

REPORT INFORMATION
  Report Type: Spontaneous
  Country: US (occurrence: US)
  Receive Date: 20150930
  Receipt Date: 20150930
  Transmission Date: 20151125
  Serious: Yes (Other)
  Sender: FDA-Public Use
  Company Number: US-ELI_LILLY_AND_COMPANY-US201509008556

PATIENT
  Age: 71 Year
  Sex: Female

DRUGS (3)
  1. FORTEO [Suspect]
     Active Substance: TERIPARATIDE
     Dosage: UNK, UNKNOWN
     Route: 065
     Dates: start: 20140720
  2. FORTEO [Suspect]
     Active Substance: TERIPARATIDE
     Indication: OSTEOPOROSIS
     Dosage: UNK, UNKNOWN
     Route: 065
     Dates: start: 20140428, end: 20140519
  3. GLIMEPIDE [Concomitant]
     Active Substance: GLIMEPIRIDE
     Dosage: 3 MG, QD

REACTIONS (6)
  - Fall [Unknown]
  - Injection site pain [Not Recovered/Not Resolved]
  - Hip fracture [Unknown]
  - Pelvic fracture [Unknown]
  - Drug dose omission [Unknown]
  - Ankle fracture [Unknown]

NARRATIVE: CASE EVENT DATE: 201508
